FAERS Safety Report 21652411 (Version 1)
Quarter: 2022Q4

REPORT INFORMATION
  Report Type: Spontaneous
  Country: US (occurrence: None)
  Receive Date: 20221123
  Receipt Date: 20221123
  Transmission Date: 20230113
  Serious: Yes (Death)
  Sender: FDA-Public Use
  Company Number: None

PATIENT
  Age: 45 Year
  Sex: Male

DRUGS (9)
  1. BIKTARVY [Suspect]
     Active Substance: BICTEGRAVIR SODIUM\EMTRICITABINE\TENOFOVIR ALAFENAMIDE FUMARATE
     Indication: HIV infection
     Dosage: OTHER STRENGTH : 50/200/25;?FREQUENCY : DAILY;?
     Route: 048
     Dates: start: 20210113, end: 20221109
  2. CYCLOBENZAPRINE [Concomitant]
     Active Substance: CYCLOBENZAPRINE
  3. GABAPENTIN [Concomitant]
     Active Substance: GABAPENTIN
  4. MELOXICAM [Concomitant]
     Active Substance: MELOXICAM
  5. NICOTINE [Concomitant]
     Active Substance: NICOTINE
  6. NAPROXEN [Concomitant]
     Active Substance: NAPROXEN
  7. TAMSULOSIN [Concomitant]
     Active Substance: TAMSULOSIN
  8. Twinrix lnj [Concomitant]
  9. VIVITROL [Concomitant]
     Active Substance: NALTREXONE

REACTIONS (1)
  - Death [None]

NARRATIVE: CASE EVENT DATE: 20221109
